FAERS Safety Report 8931851 (Version 2)
Quarter: 2012Q4

REPORT INFORMATION
  Report Type: 
  Country: US (occurrence: US)
  Receive Date: 20121128
  Receipt Date: 20121226
  Transmission Date: 20130627
  Serious: Yes (Hospitalization, Other)
  Sender: FDA-Public Use
  Company Number: US-PFIZER INC-2012297544

PATIENT
  Age: 19 Year
  Sex: Female

DRUGS (4)
  1. GEODON [Suspect]
     Indication: BIPOLAR DISORDER
     Dosage: UNK, 2x/day
  2. GEODON [Suspect]
     Indication: DEPRESSION
  3. LITHIUM [Concomitant]
     Indication: MOOD ALTERED
     Dosage: 300mg in the morning and 600 mg at night, 2x/day
  4. IMIPRAMINE [Concomitant]
     Indication: BED WETTING
     Dosage: 75mg daily

REACTIONS (4)
  - Bipolar disorder [Unknown]
  - Suicidal ideation [Unknown]
  - Panic attack [Unknown]
  - Depression [Unknown]
